FAERS Safety Report 12888823 (Version 1)
Quarter: 2016Q4

REPORT INFORMATION
  Report Type: Spontaneous
  Country: US (occurrence: US)
  Receive Date: 20161027
  Receipt Date: 20161027
  Transmission Date: 20170207
  Serious: Yes (Other)
  Sender: FDA-Public Use
  Company Number: US-B.I. PHARMACEUTICALS,INC./RIDGEFIELD-2016-BI-067205

PATIENT
  Age: 54 Year
  Sex: Female
  Weight: 154.22 kg

DRUGS (2)
  1. GILOTRIF [Suspect]
     Active Substance: AFATINIB
     Indication: NON-SMALL CELL LUNG CANCER
     Route: 048
     Dates: start: 20160627, end: 20160707
  2. GILOTRIF [Suspect]
     Active Substance: AFATINIB
     Route: 048
     Dates: start: 20160712

REACTIONS (18)
  - Urticaria [Not Recovered/Not Resolved]
  - Pre-existing condition improved [Not Recovered/Not Resolved]
  - Decreased appetite [Not Recovered/Not Resolved]
  - Pre-existing condition improved [Unknown]
  - Pre-existing condition improved [Unknown]
  - Pre-existing condition improved [Unknown]
  - Photophobia [Not Recovered/Not Resolved]
  - Brain neoplasm [Not Recovered/Not Resolved]
  - Dry mouth [Not Recovered/Not Resolved]
  - Diarrhoea [Not Recovered/Not Resolved]
  - Dry skin [Not Recovered/Not Resolved]
  - Pre-existing condition improved [Unknown]
  - Vomiting [Recovered/Resolved]
  - Anxiety [Not Recovered/Not Resolved]
  - Pre-existing condition improved [Unknown]
  - Nausea [Recovered/Resolved]
  - Abnormal loss of weight [Unknown]
  - Pre-existing condition improved [Unknown]

NARRATIVE: CASE EVENT DATE: 20160627
